FAERS Safety Report 7588475-0 (Version None)
Quarter: 2011Q3

REPORT INFORMATION
  Report Type: 
  Country: None (occurrence: None)
  Receive Date: 20110705
  Receipt Date: 20110629
  Transmission Date: 20111222
  Serious: Yes (Other)
  Sender: FDA-Public Use
  Company Number: JP-PFIZER INC-2011086664

PATIENT
  Age: 73 Year
  Sex: Male
  Weight: 56 kg

DRUGS (12)
  1. ALLOPURINOL [Concomitant]
     Dosage: 100 MG, 1X/DAY
     Dates: start: 20080508
  2. ASPIRIN [Concomitant]
     Dosage: 100 MG, 1X/DAY
     Dates: start: 20080508
  3. NORVASC [Concomitant]
     Dosage: 5 MG, 1X/DAY
     Dates: start: 20080508
  4. MICARDIS [Concomitant]
     Dosage: 80 MG, 2X/DAY
     Dates: start: 20080508
  5. NATRIX [Concomitant]
     Dosage: 1 MG, 1X/DAY
     Dates: start: 20080508
  6. ANPLAG [Concomitant]
     Dosage: 300 MG, 3X/DAY
     Dates: start: 20080508
  7. PLETAL [Concomitant]
  8. NIKORANMART [Concomitant]
     Dosage: 15 MG, 3X/DAY
     Dates: start: 20080508
  9. VARENICLINE TARTRATE [Suspect]
     Indication: SMOKING CESSATION THERAPY
     Dosage: 0.5 MG, 2X/DAY
     Route: 048
     Dates: start: 20110120, end: 20110305
  10. CRESTOR [Concomitant]
     Dosage: 5 MG, 1X/DAY
     Dates: start: 20080508
  11. DORNER [Concomitant]
     Dosage: 120 UG, 3X/DAY
     Dates: start: 20080508
  12. EPADEL [Concomitant]
     Dosage: 2700 MG, 3X/DAY
     Dates: start: 20080508

REACTIONS (3)
  - ABNORMAL BEHAVIOUR [None]
  - DECREASED APPETITE [None]
  - DELIRIUM [None]
